FAERS Safety Report 5525354-4 (Version None)
Quarter: 2007Q4

REPORT INFORMATION
  Report Type: 
  Country: None (occurrence: None)
  Receive Date: 20071120
  Receipt Date: 20071114
  Transmission Date: 20080405
  Serious: Yes (Death)
  Sender: FDA-Public Use
  Company Number: 163-20785-07090178

PATIENT
  Age: 75 Year
  Sex: Male

DRUGS (4)
  1. THALOMID [Suspect]
     Indication: MULTIPLE MYELOMA
     Dosage: 50 MG QD ORAL
     Route: 048
     Dates: start: 20031107
  2. TRAZODONE HCL [Concomitant]
  3. PROTONIX [Concomitant]
  4. GABAPENTIN [Concomitant]

REACTIONS (1)
  - GASTRIC CANCER [None]
